FAERS Safety Report 6168201-2 (Version None)
Quarter: 2009Q2

REPORT INFORMATION
  Report Type: 
  Country: None (occurrence: None)
  Receive Date: 20090427
  Receipt Date: 20090423
  Transmission Date: 20091009
  Serious: Yes (Death, Other)
  Sender: FDA-Public Use
  Company Number: PHHY2008CA08741

PATIENT
  Sex: Female

DRUGS (5)
  1. DIOVAN [Suspect]
     Indication: HYPERTENSION
     Dosage: 160 MG/DAY
     Route: 048
     Dates: start: 20080228, end: 20080713
  2. LORAZEPAM [Concomitant]
     Dosage: UNK
  3. GLICLAZIDE [Concomitant]
  4. NITRO-DUR [Concomitant]
  5. TAMOXIFEN CITRATE [Concomitant]

REACTIONS (5)
  - BLOOD PRESSURE INCREASED [None]
  - CARDIAC FAILURE CONGESTIVE [None]
  - DRUG INEFFECTIVE [None]
  - PNEUMONIA [None]
  - TREATMENT NONCOMPLIANCE [None]
